FAERS Safety Report 8276157-1 (Version None)
Quarter: 2012Q2

REPORT INFORMATION
  Report Type: 
  Country: None (occurrence: None)
  Receive Date: 20120405
  Receipt Date: 20120330
  Transmission Date: 20120825
  Serious: Yes (Hospitalization, Disabling, Other)
  Sender: FDA-Public Use
  Company Number: 2010SP031888

PATIENT
  Age: 21 Year
  Sex: Female
  Weight: 78 kg

DRUGS (4)
  1. NUVARING [Suspect]
     Indication: CONTRACEPTION
     Dosage: 1 DF, QM, VAG
     Route: 067
     Dates: start: 20081201, end: 20090304
  2. TRILEPTAL [Concomitant]
  3. FENTANYL-100 [Suspect]
     Indication: PRODUCT USED FOR UNKNOWN INDICATION
     Dosage: IV
     Route: 042
     Dates: end: 20090501
  4. ZOLOFT [Concomitant]

REACTIONS (17)
  - PULMONARY ARTERY THROMBOSIS [None]
  - PULMONARY HYPERTENSION [None]
  - HAEMOPTYSIS [None]
  - VENA CAVA INJURY [None]
  - DIZZINESS [None]
  - PROTEIN S DEFICIENCY [None]
  - NASOPHARYNGITIS [None]
  - LOSS OF CONSCIOUSNESS [None]
  - KIDNEY INFECTION [None]
  - TACHYCARDIA [None]
  - RESPIRATORY TRACT INFECTION [None]
  - PULMONARY INFARCTION [None]
  - PNEUMONIA PRIMARY ATYPICAL [None]
  - MAJOR DEPRESSION [None]
  - LIMB INJURY [None]
  - PULMONARY EMBOLISM [None]
  - DEVICE EXTRUSION [None]
